FAERS Safety Report 18594319 (Version 8)
Quarter: 2025Q2

REPORT INFORMATION
  Report Type: Report from Study
  Country: US (occurrence: US)
  Receive Date: 20201209
  Receipt Date: 20250403
  Transmission Date: 20250717
  Serious: Yes (Hospitalization, Other)
  Sender: TAKEDA
  Company Number: US-BAXTER-2015BAX020989

PATIENT
  Age: 68 Year
  Sex: Male
  Weight: 109 kg

DRUGS (28)
  1. HUMAN IMMUNOGLOBULIN G [Suspect]
     Active Substance: HUMAN IMMUNOGLOBULIN G
     Indication: Immunodeficiency common variable
  2. HUMAN IMMUNOGLOBULIN G [Suspect]
     Active Substance: HUMAN IMMUNOGLOBULIN G
     Dosage: 10 GRAM, 1/WEEK
     Dates: start: 20141009
  3. ACETAMINOPHEN [Concomitant]
     Active Substance: ACETAMINOPHEN
  4. SPIRIVA [Concomitant]
     Active Substance: TIOTROPIUM BROMIDE MONOHYDRATE
  5. METOLAZONE [Concomitant]
     Active Substance: METOLAZONE
  6. ALBUTEROL SULFATE [Concomitant]
     Active Substance: ALBUTEROL SULFATE
  7. LASIX [Concomitant]
     Active Substance: FUROSEMIDE
  8. PULMICORT TURBUHALER [Concomitant]
     Active Substance: BUDESONIDE
  9. VALIUM [Concomitant]
     Active Substance: DIAZEPAM
  10. DALIRESP [Concomitant]
     Active Substance: ROFLUMILAST
  11. SPIRONOLACTONE [Concomitant]
     Active Substance: SPIRONOLACTONE
  12. OXYGEN [Concomitant]
     Active Substance: OXYGEN
  13. PREDNISONE [Concomitant]
     Active Substance: PREDNISONE
  14. Lmx [Concomitant]
  15. DIPHENHYDRAMINE HYDROCHLORIDE [Concomitant]
     Active Substance: DIPHENHYDRAMINE HYDROCHLORIDE
  16. DIPHENHYDRAMINE [Concomitant]
     Active Substance: DIPHENHYDRAMINE
  17. MUCINEX D [Concomitant]
     Active Substance: GUAIFENESIN\PSEUDOEPHEDRINE HYDROCHLORIDE
  18. EPINEPHRINE [Concomitant]
     Active Substance: EPINEPHRINE
  19. PERFOROMIST [Concomitant]
     Active Substance: FORMOTEROL FUMARATE DIHYDRATE
  20. LEXAPRO [Concomitant]
     Active Substance: ESCITALOPRAM OXALATE
  21. AZITHROMYCIN [Concomitant]
     Active Substance: AZITHROMYCIN
  22. YEAST [Concomitant]
     Active Substance: YEAST
  23. LOVASTATIN [Concomitant]
     Active Substance: LOVASTATIN
  24. ASPIRIN [Concomitant]
     Active Substance: ASPIRIN
  25. KLOR-CON M10 [Concomitant]
     Active Substance: POTASSIUM CHLORIDE
  26. PROAIR HFA [Concomitant]
     Active Substance: ALBUTEROL SULFATE
  27. BACTRIM [Concomitant]
     Active Substance: SULFAMETHOXAZOLE\TRIMETHOPRIM
  28. AUGMENTIN [Concomitant]
     Active Substance: AMOXICILLIN\CLAVULANATE POTASSIUM

REACTIONS (16)
  - Pneumonia [Unknown]
  - Sepsis [Unknown]
  - Chronic obstructive pulmonary disease [Unknown]
  - Cardiac failure congestive [Unknown]
  - Lymph node abscess [Unknown]
  - Injection site cellulitis [Unknown]
  - Drug hypersensitivity [Unknown]
  - Infusion site discharge [Unknown]
  - Infusion site mass [Unknown]
  - Infusion site rash [Unknown]
  - Epistaxis [Unknown]
  - Infusion site erythema [Recovered/Resolved with Sequelae]
  - Rash papular [Unknown]
  - Cough [Unknown]
  - Infusion site swelling [Unknown]
  - Infusion site pain [Unknown]

NARRATIVE: CASE EVENT DATE: 20150201
